FAERS Safety Report 5280268-2 (Version None)
Quarter: 2007Q1

REPORT INFORMATION
  Report Type: 
  Country: None (occurrence: None)
  Receive Date: 20070329
  Receipt Date: 20070321
  Transmission Date: 20070707
  Serious: Yes (Other)
  Sender: FDA-Public Use
  Company Number: US-GLAXOSMITHKLINE-A0644085A

PATIENT
  Age: 66 Year
  Sex: Male

DRUGS (9)
  1. PAXIL [Suspect]
     Indication: DEPRESSION
     Dosage: 20MG PER DAY
     Route: 048
     Dates: start: 20030101, end: 20070303
  2. WELLBUTRIN [Suspect]
     Indication: DEPRESSION
     Dosage: 150MG PER DAY
     Route: 048
     Dates: start: 20070301, end: 20070319
  3. INSULIN [Concomitant]
  4. GLUCOVANCE [Concomitant]
  5. ACTOS [Concomitant]
  6. AMARYL [Concomitant]
  7. NEXIUM [Concomitant]
  8. ATACAND [Concomitant]
  9. FLOMAX [Concomitant]

REACTIONS (11)
  - ABNORMAL DREAMS [None]
  - AGGRESSION [None]
  - DECREASED INTEREST [None]
  - DISTURBANCE IN ATTENTION [None]
  - DIZZINESS [None]
  - ENERGY INCREASED [None]
  - FEELING ABNORMAL [None]
  - HYPERSOMNIA [None]
  - INSOMNIA [None]
  - LETHARGY [None]
  - NAUSEA [None]
